FAERS Safety Report 9102564 (Version 2)
Quarter: 2013Q2

REPORT INFORMATION
  Report Type: Report from Study
  Country: DE (occurrence: DE)
  Receive Date: 20130219
  Receipt Date: 20130403
  Transmission Date: 20140414
  Serious: Yes (Hospitalization)
  Sender: FDA-Public Use
  Company Number: DE-BRISTOL-MYERS SQUIBB COMPANY-17148461

PATIENT
  Age: 69 Year
  Sex: Female

DRUGS (8)
  1. BLINDED: IPILIMUMAB [Suspect]
     Indication: SMALL CELL LUNG CANCER
     Dosage: 31OCT-31OCT12:750MG:IV.COURSE-1
     Route: 042
     Dates: start: 20121031
  2. CARBOPLATIN [Suspect]
     Indication: SMALL CELL LUNG CANCER
     Route: 042
     Dates: start: 20120910
  3. ETOPOSIDE [Suspect]
     Indication: SMALL CELL LUNG CANCER
     Route: 042
     Dates: start: 20120910
  4. BLINDED: PLACEBO [Suspect]
     Indication: SMALL CELL LUNG CANCER
     Dosage: 31OCT-31OCT12:750MG:IV
     Route: 042
     Dates: start: 20121031
  5. SULTANOL [Concomitant]
  6. SIMVASTATIN [Concomitant]
  7. ACC [Concomitant]
     Dates: start: 20010201
  8. PANTOZOL [Concomitant]

REACTIONS (1)
  - Pancytopenia [Recovered/Resolved]
